FAERS Safety Report 6799165-6 (Version None)
Quarter: 2010Q2

REPORT INFORMATION
  Report Type: 
  Country: None (occurrence: None)
  Receive Date: 20100615
  Receipt Date: 20100608
  Transmission Date: 20101027
  Serious: Yes (Other)
  Sender: FDA-Public Use
  Company Number: 2010SP024419

PATIENT
  Age: 32 Year
  Sex: Male
  Weight: 117.028 kg

DRUGS (7)
  1. SAPHRIS [Suspect]
     Indication: PSYCHOTIC DISORDER
     Dosage: 5 MG; BID; SL
     Route: 060
     Dates: start: 20100415, end: 20100427
  2. LEXAPRO [Concomitant]
  3. CLARITIN-D [Concomitant]
  4. TEKTURNA [Concomitant]
  5. ETODOLAC [Concomitant]
  6. AMRIX [Concomitant]
  7. CRESTOR [Concomitant]

REACTIONS (2)
  - SWELLING FACE [None]
  - WEIGHT INCREASED [None]
